FAERS Safety Report 9440610 (Version 1)
Quarter: 2013Q3

REPORT INFORMATION
  Report Type: Spontaneous
  Country: IT (occurrence: IT)
  Receive Date: 20130805
  Receipt Date: 20130805
  Transmission Date: 20140515
  Serious: Yes (Other)
  Sender: FDA-Public Use
  Company Number: IT-TEVA-421317ISR

PATIENT
  Age: 84 Year
  Sex: Female

DRUGS (1)
  1. QUETIAPINE [Suspect]
     Indication: SENILE DEMENTIA
     Dosage: 125 MILLIGRAM DAILY;
     Route: 048
     Dates: start: 20130710, end: 20130710

REACTIONS (3)
  - Hypersensitivity [Unknown]
  - Loss of consciousness [Unknown]
  - Oedema [Unknown]
